FAERS Safety Report 8576332-2 (Version None)
Quarter: 2012Q3

REPORT INFORMATION
  Report Type: 
  Country: None (occurrence: None)
  Receive Date: 20120807
  Receipt Date: 20091014
  Transmission Date: 20120928
  Serious: Yes (Other)
  Sender: FDA-Public Use
  Company Number: CO-PFIZER INC-2012187796

PATIENT
  Age: 92 Year
  Sex: Female

DRUGS (4)
  1. LOSARTAN [Concomitant]
     Dosage: 50 MG, 2X/DAY
  2. AMIODARONE HYDROCHLORIDE [Concomitant]
     Dosage: 200 MG, 1X/DAY
  3. LIPITOR [Suspect]
     Indication: DYSLIPIDAEMIA
     Dosage: 20 MG, 1X/DAY
  4. ACETYLSALICYLIC ACID [Concomitant]
     Dosage: 100 MG, 1X/DAY

REACTIONS (4)
  - HAEMATURIA [None]
  - RENAL FAILURE CHRONIC [None]
  - ARRHYTHMIA [None]
  - LEUKOCYTURIA [None]
